FAERS Safety Report 7670751-4 (Version None)
Quarter: 2011Q3

REPORT INFORMATION
  Report Type: 
  Country: None (occurrence: None)
  Receive Date: 20110803
  Receipt Date: 20110719
  Transmission Date: 20111222
  Serious: Yes (Death, Congenital Anomaly, Other)
  Sender: FDA-Public Use
  Company Number: 2011MA009091

PATIENT
  Age: 8 Month

DRUGS (1)
  1. PROPYLTHIOURACIL TAB [Suspect]
     Indication: BASEDOW'S DISEASE
     Dosage: 300 MG; QD

REACTIONS (6)
  - NEONATAL TACHYCARDIA [None]
  - CONGENITAL HYPOTHYROIDISM [None]
  - NEONATAL MULTI-ORGAN FAILURE [None]
  - JAUNDICE NEONATAL [None]
  - PREMATURE BABY [None]
  - MATERNAL DRUGS AFFECTING FOETUS [None]
